FAERS Safety Report 6233913-9 (Version None)
Quarter: 2009Q2

REPORT INFORMATION
  Report Type: 
  Country: None (occurrence: None)
  Receive Date: 20090618
  Receipt Date: 20090605
  Transmission Date: 20091009
  Serious: Yes (Other)
  Sender: FDA-Public Use
  Company Number: PHHY2009GB14185

PATIENT
  Sex: Male

DRUGS (11)
  1. CLOZARIL [Suspect]
     Indication: SCHIZOPHRENIA
     Dosage: 325 MG DAILY
     Route: 048
     Dates: start: 20090126, end: 20090411
  2. LAMOTRIGINE [Concomitant]
     Dosage: 25 MG, QD
     Route: 048
  3. LAMOTRIGINE [Concomitant]
     Dosage: 50 MG, QD
     Route: 048
     Dates: start: 20090428
  4. VENLAFAXINE HYDROCHLORIDE [Concomitant]
     Dosage: 262.5 MG DAILY
     Route: 048
  5. LACTULOSE [Concomitant]
     Dosage: 15 ML, BID
     Dates: start: 20090309
  6. INHALATION [Concomitant]
     Indication: ASTHMA
  7. RISPERIDONE [Concomitant]
     Dosage: 3 MG, BID
     Route: 048
  8. RISPERIDONE [Concomitant]
     Dosage: 2 MG, BID
     Route: 048
     Dates: start: 20090130
  9. RISPERIDONE [Concomitant]
     Dosage: 1 MG, BID
     Route: 048
     Dates: start: 20090225
  10. RISPERIDONE [Concomitant]
     Dosage: UNK
     Route: 048
     Dates: end: 20090311
  11. SYMBICORT [Concomitant]
     Dosage: 200 UG, BID

REACTIONS (8)
  - ALANINE AMINOTRANSFERASE INCREASED [None]
  - BLOOD ALKALINE PHOSPHATASE INCREASED [None]
  - BLOOD BILIRUBIN INCREASED [None]
  - BLOOD GLUCOSE INCREASED [None]
  - GAMMA-GLUTAMYLTRANSFERASE INCREASED [None]
  - HAEMOPHILUS INFECTION [None]
  - LIVER FUNCTION TEST ABNORMAL [None]
  - LOWER RESPIRATORY TRACT INFECTION [None]
